FAERS Safety Report 7552042-5 (Version None)
Quarter: 2011Q2

REPORT INFORMATION
  Report Type: 
  Country: None (occurrence: None)
  Receive Date: 20110616
  Receipt Date: 20110609
  Transmission Date: 20111010
  Serious: Yes (Hospitalization)
  Sender: FDA-Public Use
  Company Number: US-ROXANE LABORATORIES, INC.-2011-RO-00804RO

PATIENT
  Age: 61 Year
  Sex: Female
  Weight: 85 kg

DRUGS (7)
  1. DEXAMETHASONE [Suspect]
     Indication: MULTIPLE MYELOMA
     Route: 048
     Dates: start: 20100913, end: 20110505
  2. BORTEZOMIB [Suspect]
     Indication: MULTIPLE MYELOMA
     Route: 042
     Dates: start: 20100913, end: 20110505
  3. ACYCLOVIR [Concomitant]
     Indication: PROPHYLAXIS
     Dates: start: 20101122
  4. ALPRAZOLAM [Concomitant]
     Indication: INSOMNIA
     Dates: start: 20100913
  5. CALCIUM CARBONATE [Concomitant]
     Indication: MEDICAL DIET
     Dates: start: 20100913
  6. MULTIVITAMIN [Concomitant]
     Indication: MEDICAL DIET
     Dates: start: 20100913
  7. UNKNOWN [Concomitant]
     Indication: MULTIPLE MYELOMA
     Route: 048
     Dates: start: 20100913, end: 20110429

REACTIONS (1)
  - CHRONIC OBSTRUCTIVE PULMONARY DISEASE [None]
